FAERS Safety Report 7231108-3 (Version None)
Quarter: 2011Q1

REPORT INFORMATION
  Report Type: 
  Country: None (occurrence: None)
  Receive Date: 20110118
  Receipt Date: 20110110
  Transmission Date: 20110831
  Serious: Yes (Death, Other)
  Sender: FDA-Public Use
  Company Number: US-TEVA-263090USA

PATIENT

DRUGS (1)
  1. METOCLOPRAMIDE [Suspect]

REACTIONS (5)
  - EXTRAPYRAMIDAL DISORDER [None]
  - TARDIVE DYSKINESIA [None]
  - NERVOUS SYSTEM DISORDER [None]
  - OVERDOSE [None]
  - MOVEMENT DISORDER [None]
